FAERS Safety Report 5759385-6 (Version None)
Quarter: 2008Q2

REPORT INFORMATION
  Report Type: 
  Country: None (occurrence: None)
  Receive Date: 20080602
  Receipt Date: 20080520
  Transmission Date: 20081010
  Serious: Yes (Hospitalization)
  Sender: FDA-Public Use
  Company Number: 2008JP002404

PATIENT
  Age: 87 Year
  Sex: Male

DRUGS (3)
  1. FUNGUARD     (MICAFUNGIN) INJECTION [Suspect]
     Indication: FUNGAL INFECTION
     Dosage: 300 MG, UID/QD, IV DRIP
     Route: 041
     Dates: start: 20080516, end: 20080520
  2. ITRIZOLE      (ITRACONAZOLE) INJECTION [Suspect]
     Dosage: 200 MG, IV DRIP
     Route: 041
     Dates: start: 20080501
  3. ROCEPHIN [Suspect]
     Dosage: IV DRIP
     Route: 041
     Dates: start: 20080501

REACTIONS (4)
  - CARDIAC FAILURE ACUTE [None]
  - DRUG INEFFECTIVE [None]
  - OEDEMA PERIPHERAL [None]
  - WEIGHT INCREASED [None]
